FAERS Safety Report 19369865 (Version 2)
Quarter: 2021Q2

REPORT INFORMATION
  Report Type: Spontaneous
  Country: DE (occurrence: DE)
  Receive Date: 20210604
  Receipt Date: 20210628
  Transmission Date: 20210717
  Serious: Yes (Hospitalization, Other)
  Sender: FDA-Public Use
  Company Number: DE-ROCHE-2841201

PATIENT
  Age: 51 Year
  Sex: Female
  Weight: 66 kg

DRUGS (10)
  1. OCREVUS [Suspect]
     Active Substance: OCRELIZUMAB
     Indication: RELAPSING MULTIPLE SCLEROSIS
     Route: 042
     Dates: start: 20180322, end: 202009
  2. CETIRIZIN [Concomitant]
     Active Substance: CETIRIZINE HYDROCHLORIDE
  3. IODIDE [Concomitant]
     Active Substance: IODINE
  4. GLATIRAMERACETAT [Concomitant]
  5. PARACETAMOL [Concomitant]
     Active Substance: ACETAMINOPHEN
  6. FAMOTIDIN [Concomitant]
     Active Substance: FAMOTIDINE
  7. XARELTO [Concomitant]
     Active Substance: RIVAROXABAN
     Dates: start: 202105
  8. DEKRISTOL [Concomitant]
     Active Substance: CHOLECALCIFEROL
  9. ELIQUIS [Concomitant]
     Active Substance: APIXABAN
  10. PREDNISOLONE. [Concomitant]
     Active Substance: PREDNISOLONE

REACTIONS (17)
  - Eosinophilia [Unknown]
  - Blood iron decreased [Unknown]
  - Cough [Unknown]
  - Tachycardia [Not Recovered/Not Resolved]
  - Deep vein thrombosis [Unknown]
  - Vitamin D decreased [Unknown]
  - Toxicity to various agents [Unknown]
  - Bone pain [Unknown]
  - Leukocytosis [Unknown]
  - Protein total decreased [Unknown]
  - Pulmonary embolism [Unknown]
  - Oedema peripheral [Unknown]
  - Multiple sclerosis relapse [Unknown]
  - Eosinophilic fasciitis [Unknown]
  - Blood alkaline phosphatase increased [Unknown]
  - Cardiac failure [Unknown]
  - C-reactive protein increased [Unknown]

NARRATIVE: CASE EVENT DATE: 20180424
